FAERS Safety Report 25481506 (Version 1)
Quarter: 2025Q2

REPORT INFORMATION
  Report Type: Report from Study
  Country: US (occurrence: US)
  Receive Date: 20250626
  Receipt Date: 20250626
  Transmission Date: 20250716
  Serious: Yes (Hospitalization, Other)
  Sender: TAKEDA
  Company Number: US-TAKEDA-2024TUS130082

PATIENT
  Age: 53 Year
  Sex: Female
  Weight: 139.8 kg

DRUGS (28)
  1. FRUQUINTINIB [Suspect]
     Active Substance: FRUQUINTINIB
     Indication: Colon cancer
  2. FRUQUINTINIB [Suspect]
     Active Substance: FRUQUINTINIB
     Indication: Colorectal cancer stage IV
  3. FRUQUINTINIB [Suspect]
     Active Substance: FRUQUINTINIB
     Indication: Lung neoplasm malignant
  4. FRUQUINTINIB [Suspect]
     Active Substance: FRUQUINTINIB
  5. FRUQUINTINIB [Suspect]
     Active Substance: FRUQUINTINIB
  6. FRUQUINTINIB [Suspect]
     Active Substance: FRUQUINTINIB
  7. ATIVAN [Concomitant]
     Active Substance: LORAZEPAM
  8. CANNABIDIOL [Concomitant]
     Active Substance: CANNABIDIOL
  9. VITAMIN D3 [Concomitant]
     Active Substance: CHOLECALCIFEROL
  10. EXCEDRIN [Concomitant]
     Active Substance: ACETAMINOPHEN\ASPIRIN\CAFFEINE
     Indication: Migraine
  11. GINGER [Concomitant]
     Active Substance: GINGER
  12. LEVOTHYROXINE SODIUM [Concomitant]
     Active Substance: LEVOTHYROXINE SODIUM
  13. LORAZEPAM [Concomitant]
     Active Substance: LORAZEPAM
  14. PROCHLORPERAZINE [Concomitant]
     Active Substance: PROCHLORPERAZINE
  15. PROTONIX [Concomitant]
     Active Substance: PANTOPRAZOLE SODIUM
  16. TRAMADOL [Concomitant]
     Active Substance: TRAMADOL
  17. TURMERIC [Concomitant]
     Active Substance: TURMERIC
  18. Tylenol cold/flu severe congestion [Concomitant]
     Indication: Nasopharyngitis
  19. Tylenol cold/flu severe congestion [Concomitant]
     Indication: Influenza
  20. VITAMIN B COMPLEX [Concomitant]
     Active Substance: CYANOCOBALAMIN\DEXPANTHENOL\NIACINAMIDE\PYRIDOXINE HYDROCHLORIDE\RIBOFLAVIN 5^-PHOSPHATE SODIUM\THIA
  21. AMOXICILLIN [Concomitant]
     Active Substance: AMOXICILLIN
  22. TESSALON [Concomitant]
     Active Substance: BENZONATATE
  23. MUCINEX DM [Concomitant]
     Active Substance: DEXTROMETHORPHAN HYDROBROMIDE\GUAIFENESIN
  24. AMLODIPINE BESYLATE [Concomitant]
     Active Substance: AMLODIPINE BESYLATE
  25. PREVACID [Concomitant]
     Active Substance: LANSOPRAZOLE
  26. PROCHLORPERAZINE MALEATE [Concomitant]
     Active Substance: PROCHLORPERAZINE MALEATE
  27. VITAMIN D [Concomitant]
     Active Substance: VITAMIN D NOS
  28. TYLENOL [Concomitant]
     Active Substance: ACETAMINOPHEN

REACTIONS (24)
  - Pneumonia [Recovering/Resolving]
  - Sensitive skin [Unknown]
  - Headache [Recovering/Resolving]
  - Palmar-plantar erythrodysaesthesia syndrome [Not Recovered/Not Resolved]
  - Hyperkeratosis [Unknown]
  - Hyperhidrosis [Unknown]
  - Migraine [Unknown]
  - Cough [Not Recovered/Not Resolved]
  - Nasal congestion [Unknown]
  - Pain [Unknown]
  - Burning sensation [Recovering/Resolving]
  - Paraesthesia [Recovering/Resolving]
  - Oral mucosal blistering [Unknown]
  - Abdominal pain upper [Recovering/Resolving]
  - Abdominal discomfort [Unknown]
  - Dysphonia [Unknown]
  - Fatigue [Unknown]
  - Oral pain [Unknown]
  - Pain in extremity [Unknown]
  - Blood pressure increased [Unknown]
  - Asthenia [Unknown]
  - Influenza [Recovering/Resolving]
  - Pharyngitis [Unknown]
  - Nasopharyngitis [Unknown]

NARRATIVE: CASE EVENT DATE: 20241224
